FAERS Safety Report 11728115 (Version 1)
Quarter: 2015Q4

REPORT INFORMATION
  Report Type: Spontaneous
  Country: US (occurrence: US)
  Receive Date: 20151112
  Receipt Date: 20151112
  Transmission Date: 20160304
  Serious: No
  Sender: FDA-Public Use
  Company Number: US-B.I. PHARMACEUTICALS,INC./RIDGEFIELD-2015-BI-60815BP

PATIENT
  Age: 80 Year
  Sex: Female

DRUGS (1)
  1. PRADAXA [Suspect]
     Active Substance: DABIGATRAN ETEXILATE MESYLATE
     Indication: ATRIAL FIBRILLATION
     Dosage: 300 MG
     Route: 048
     Dates: end: 2014

REACTIONS (6)
  - Gait disturbance [Recovered/Resolved]
  - Fall [Recovered/Resolved]
  - Memory impairment [Not Recovered/Not Resolved]
  - Pruritus [Not Recovered/Not Resolved]
  - Back injury [Not Recovered/Not Resolved]
  - Back pain [Unknown]

NARRATIVE: CASE EVENT DATE: 201501
